FAERS Safety Report 8111607 (Version 3)
Quarter: 2013Q4

REPORT INFORMATION
  Report Type: Spontaneous
  Country: US (occurrence: US)
  Receive Date: 20110829
  Receipt Date: 20131202
  Transmission Date: 20140711
  Serious: Yes (Hospitalization)
  Sender: FDA-Public Use
  Company Number: US-BAYER-2011-075051

PATIENT
  Age: 24 Year
  Sex: Female
  Weight: 61.22 kg

DRUGS (1)
  1. YAZ [Suspect]
     Indication: PREMENSTRUAL SYNDROME
     Dosage: UNK
     Dates: start: 200703, end: 200803

REACTIONS (6)
  - Pancreatitis [None]
  - Cholecystitis [None]
  - Gallbladder disorder [None]
  - Liver injury [None]
  - Hepatic function abnormal [None]
  - Injury [None]
